FAERS Safety Report 9364892 (Version 3)
Quarter: 2013Q3

REPORT INFORMATION
  Report Type: Spontaneous
  Country: JP (occurrence: JP)
  Receive Date: 20130624
  Receipt Date: 20130729
  Transmission Date: 20140515
  Serious: Yes (Other)
  Sender: FDA-Public Use
  Company Number: JP-GLAXOSMITHKLINE-B0899702A

PATIENT
  Age: 93 Year
  Sex: Female

DRUGS (5)
  1. VALTREX [Suspect]
     Indication: HERPES ZOSTER
     Dosage: 1000MG PER DAY
     Route: 048
     Dates: start: 20130521, end: 20130527
  2. CALONAL [Concomitant]
     Route: 048
     Dates: start: 20130521, end: 20130603
  3. METHYCOBAL [Concomitant]
     Route: 048
     Dates: start: 20130521, end: 20130603
  4. GENTACIN [Concomitant]
     Route: 061
     Dates: start: 20130521
  5. LYRICA [Concomitant]
     Route: 048
     Dates: start: 20130527

REACTIONS (7)
  - Toxic encephalopathy [Recovering/Resolving]
  - Myoclonic epilepsy [Recovering/Resolving]
  - Hallucination, visual [Recovering/Resolving]
  - Incontinence [Not Recovered/Not Resolved]
  - Tremor [Recovered/Resolved]
  - Tremor [Unknown]
  - Myoclonus [Recovering/Resolving]
